FAERS Safety Report 9890431 (Version 1)
Quarter: 2014Q1

REPORT INFORMATION
  Report Type: Spontaneous
  Country: US (occurrence: None)
  Receive Date: 20140207
  Receipt Date: 20140207
  Transmission Date: 20141002
  Serious: Yes (Death)
  Sender: FDA-Public Use
  Company Number: SYM-2014-15615

PATIENT
  Age: 69 Year
  Sex: Female

DRUGS (5)
  1. DILTIAZEM [Suspect]
     Indication: PRODUCT USED FOR UNKNOWN INDICATION
  2. POTASSIUM CHLORIDE (POTASSIUM CHLORIDE) [Suspect]
     Indication: PRODUCT USED FOR UNKNOWN INDICATION
     Route: 048
  3. MECLIZINE [Suspect]
     Indication: PRODUCT USED FOR UNKNOWN INDICATION
     Route: 048
  4. PIOGLITAZONE (PIOGLITAZONE) [Suspect]
     Indication: PRODUCT USED FOR UNKNOWN INDICATION
  5. ATORVASTATIN (ATORVASTATIN) [Suspect]
     Indication: PRODUCT USED FOR UNKNOWN INDICATION
     Route: 048

REACTIONS (3)
  - Poisoning [None]
  - Exposure via ingestion [None]
  - Completed suicide [None]
